FAERS Safety Report 6959592-0 (Version None)
Quarter: 2010Q3

REPORT INFORMATION
  Report Type: 
  Country: None (occurrence: None)
  Receive Date: 20100825
  Receipt Date: 20100816
  Transmission Date: 20110219
  Serious: Yes (Other)
  Sender: FDA-Public Use
  Company Number: 2010SP044215

PATIENT
  Sex: Female

DRUGS (1)
  1. DESOGESTREL/ETHINYL ESTRADIOL [Suspect]
     Indication: POLYCYSTIC OVARIES

REACTIONS (1)
  - PAIN IN EXTREMITY [None]
